FAERS Safety Report 16074983 (Version 1)
Quarter: 2019Q1

REPORT INFORMATION
  Report Type: Spontaneous
  Country: US (occurrence: US)
  Receive Date: 20190315
  Receipt Date: 20190315
  Transmission Date: 20190418
  Serious: Yes (Other)
  Sender: FDA-Public Use
  Company Number: US-009507513-1903USA003891

PATIENT
  Sex: Male
  Weight: 98.87 kg

DRUGS (3)
  1. VIAGRA [Suspect]
     Active Substance: SILDENAFIL CITRATE
     Indication: ERECTILE DYSFUNCTION
     Dosage: 100 MILLIGRAM TABLETS AS NEEDED
     Route: 048
     Dates: start: 2007
  2. CIALIS [Suspect]
     Active Substance: TADALAFIL
     Dosage: UNK
     Dates: start: 2018
  3. PRINIVIL [Suspect]
     Active Substance: LISINOPRIL
     Indication: BLOOD PRESSURE MANAGEMENT
     Dosage: 10 MILLIGRAM ONCE DAILY
     Route: 048
     Dates: start: 2018

REACTIONS (11)
  - Drug resistance [Unknown]
  - Weight decreased [Unknown]
  - Weight increased [Unknown]
  - Vertigo [Unknown]
  - Cholecystectomy [Unknown]
  - Headache [Not Recovered/Not Resolved]
  - Drug ineffective [Not Recovered/Not Resolved]
  - Pain [Unknown]
  - Vision blurred [Not Recovered/Not Resolved]
  - Malaise [Unknown]
  - Erectile dysfunction [Not Recovered/Not Resolved]
